FAERS Safety Report 20054617 (Version 1)
Quarter: 2021Q4

REPORT INFORMATION
  Report Type: Spontaneous
  Country: JP (occurrence: JP)
  Receive Date: 20211110
  Receipt Date: 20211110
  Transmission Date: 20220303
  Serious: Yes (Other)
  Sender: FDA-Public Use
  Company Number: JP-PFIZER INC-202101489395

PATIENT
  Age: 85 Year
  Sex: Female

DRUGS (4)
  1. HYDROCHLOROTHIAZIDE\LOSARTAN POTASSIUM [Suspect]
     Active Substance: HYDROCHLOROTHIAZIDE\LOSARTAN POTASSIUM
  2. CELECOXIB [Suspect]
     Active Substance: CELECOXIB
  3. ELDECALCITOL [Suspect]
     Active Substance: ELDECALCITOL
  4. FUROSEMIDE [Suspect]
     Active Substance: FUROSEMIDE
     Indication: Oedema peripheral
     Dosage: 40 MG, DAILY

REACTIONS (2)
  - Milk-alkali syndrome [Recovering/Resolving]
  - Renal impairment [Unknown]
